FAERS Safety Report 9305117 (Version 2)
Quarter: 2013Q2

REPORT INFORMATION
  Report Type: Spontaneous
  Country: LU (occurrence: LU)
  Receive Date: 20130523
  Receipt Date: 20130617
  Transmission Date: 20140414
  Serious: Yes (Other)
  Sender: FDA-Public Use
  Company Number: LU-ROCHE-1227450

PATIENT
  Age: 80 Year
  Sex: Male

DRUGS (5)
  1. LUCENTIS [Suspect]
     Indication: AGE-RELATED MACULAR DEGENERATION
     Route: 050
     Dates: start: 20130404
  2. LUCENTIS [Suspect]
     Route: 065
     Dates: start: 20130408
  3. LUCENTIS [Suspect]
     Route: 065
     Dates: start: 20130502, end: 20130502
  4. LUCENTIS [Suspect]
     Route: 065
     Dates: start: 20130506, end: 20130506
  5. ASPEGIC [Concomitant]
     Route: 048

REACTIONS (3)
  - Subcutaneous haematoma [Unknown]
  - Haematoma [Unknown]
  - Contusion [Unknown]
